FAERS Safety Report 9520393 (Version 2)
Quarter: 2013Q3

REPORT INFORMATION
  Report Type: Spontaneous
  Country: JP (occurrence: JP)
  Receive Date: 20130912
  Receipt Date: 20130912
  Transmission Date: 20140515
  Serious: Yes (Other)
  Sender: FDA-Public Use
  Company Number: JP-B.I. PHARMACEUTICALS,INC./RIDGEFIELD-2013-BI-27759NB

PATIENT
  Age: 76 Year
  Sex: Male

DRUGS (2)
  1. BI-SIFROL [Suspect]
     Indication: PARKINSON^S DISEASE
     Dosage: 0.25 MG
     Route: 048
  2. MADOPAR [Suspect]
     Indication: PARKINSON^S DISEASE
     Dosage: DAILY DOSE: 2 DF
     Route: 048

REACTIONS (3)
  - Intracranial aneurysm [Unknown]
  - Delirium [Recovered/Resolved]
  - Enuresis [Recovered/Resolved]
